FAERS Safety Report 8166892-8 (Version None)
Quarter: 2012Q1

REPORT INFORMATION
  Report Type: 
  Country: None (occurrence: None)
  Receive Date: 20120227
  Receipt Date: 20120216
  Transmission Date: 20120608
  Serious: Yes (Other)
  Sender: FDA-Public Use
  Company Number: CA-ROCHE-GNE292850

PATIENT
  Sex: Female
  Weight: 52.056 kg

DRUGS (11)
  1. XOLAIR [Suspect]
     Dosage: 150 MG, 1/MONTH
     Dates: start: 20091112
  2. VENTOLIN [Concomitant]
     Indication: PRODUCT USED FOR UNKNOWN INDICATION
     Dosage: 2 PUFF, PRN, DOSE=2 PUFF
  3. PREDNISONE [Concomitant]
     Indication: PRODUCT USED FOR UNKNOWN INDICATION
     Dosage: 15 MG, UNK
  4. PREDNISONE [Concomitant]
     Dosage: 10 MG, UNK
  5. CORTISONE ACETATE [Concomitant]
     Route: 065
  6. CORTISONE ACETATE [Concomitant]
     Dosage: HIGH DOSES
  7. XOLAIR [Suspect]
     Indication: ASTHMA
     Dosage: 150 MG, 1/MONTH
     Route: 058
     Dates: start: 20090917
  8. XOLAIR [Suspect]
     Dosage: 150 MG, 1/MONTH
     Route: 058
     Dates: start: 20091215
  9. SINGULAIR [Concomitant]
  10. ADVAIR DISKUS 100/50 [Concomitant]
  11. FLOVENT [Concomitant]

REACTIONS (16)
  - OEDEMA PERIPHERAL [None]
  - COUGH [None]
  - BRONCHIAL OBSTRUCTION [None]
  - NASOPHARYNGITIS [None]
  - PRODUCTIVE COUGH [None]
  - FATIGUE [None]
  - GASTROENTERITIS [None]
  - WHEEZING [None]
  - BREATH SOUNDS ABNORMAL [None]
  - INFLUENZA [None]
  - BALANCE DISORDER [None]
  - HYPERSENSITIVITY [None]
  - MALAISE [None]
  - RESPIRATORY DISORDER [None]
  - NAUSEA [None]
  - BLOOD PRESSURE DIASTOLIC DECREASED [None]
